FAERS Safety Report 6108740-3 (Version None)
Quarter: 2009Q1

REPORT INFORMATION
  Report Type: 
  Country: None (occurrence: None)
  Receive Date: 20090309
  Receipt Date: 20090309
  Transmission Date: 20090719
  Serious: Yes (Other)
  Sender: FDA-Public Use
  Company Number: None

PATIENT
  Age: 5 Year
  Sex: Male
  Weight: 15.9439 kg

DRUGS (4)
  1. LEVETIRACETAM [Suspect]
     Indication: CONVULSION
     Dosage: 8 ML AM PO 10 ML PM PO
     Route: 048
  2. DIAZEPAM [Concomitant]
  3. TOPAMAX [Concomitant]
  4. PYRIDOXINE HCL [Concomitant]

REACTIONS (4)
  - CONVULSION [None]
  - MOOD ALTERED [None]
  - MOOD SWINGS [None]
  - THERAPEUTIC RESPONSE UNEXPECTED WITH DRUG SUBSTITUTION [None]
